FAERS Safety Report 12847390 (Version 2)
Quarter: 2017Q1

REPORT INFORMATION
  Report Type: Report from Study
  Country: US (occurrence: US)
  Receive Date: 20161014
  Receipt Date: 20170126
  Transmission Date: 20170428
  Serious: Yes (Death)
  Sender: FDA-Public Use
  Company Number: US-ACTELION-A-US2016-143549

PATIENT
  Age: 69 Year
  Sex: Female
  Weight: 81.63 kg

DRUGS (8)
  1. UPTRAVI [Suspect]
     Active Substance: SELEXIPAG
     Indication: PULMONARY HYPERTENSION
     Dosage: 800 MCG, BID
     Route: 048
     Dates: start: 20160729
  2. REMODULIN [Suspect]
     Active Substance: TREPROSTINIL
     Indication: PULMONARY HYPERTENSION
     Dosage: 0.02 ?G/KG, Q4HRS
     Route: 058
     Dates: start: 20160408
  3. REVATIO [Concomitant]
     Active Substance: SILDENAFIL CITRATE
  4. ADCIRCA [Concomitant]
     Active Substance: TADALAFIL
  5. ELIQUIS [Concomitant]
     Active Substance: APIXABAN
  6. LETAIRIS [Suspect]
     Active Substance: AMBRISENTAN
     Indication: PULMONARY HYPERTENSION
     Dosage: 10 MG, QD
     Route: 048
     Dates: start: 20160520, end: 20160929
  7. DILTIAZEM. [Concomitant]
     Active Substance: DILTIAZEM
  8. COUMADIN [Concomitant]
     Active Substance: WARFARIN SODIUM

REACTIONS (15)
  - Muscle spasms [Unknown]
  - Pain in extremity [Recovered/Resolved]
  - Infusion site discharge [Recovered/Resolved]
  - Alopecia [Not Recovered/Not Resolved]
  - Death [Fatal]
  - Nausea [Not Recovered/Not Resolved]
  - Pain in jaw [Unknown]
  - Infusion site pain [Recovered/Resolved]
  - Eye swelling [Not Recovered/Not Resolved]
  - Infusion site infection [Recovered/Resolved]
  - Blood phosphorus increased [Unknown]
  - Fatigue [Recovered/Resolved]
  - Appetite disorder [Not Recovered/Not Resolved]
  - Burning sensation [Unknown]
  - Pain [Recovered/Resolved]

NARRATIVE: CASE EVENT DATE: 201607
